FAERS Safety Report 11158469 (Version 1)
Quarter: 2015Q2

REPORT INFORMATION
  Report Type: Spontaneous
  Country: US (occurrence: None)
  Receive Date: 20150514
  Receipt Date: 20150514
  Transmission Date: 20150821
  Serious: Yes (Death)
  Sender: FDA-Public Use
  Company Number: 2015010049

PATIENT
  Age: 47 Year
  Sex: Female

DRUGS (4)
  1. METOPROLOL (METOPROLOL) [Suspect]
     Active Substance: METOPROLOL
  2. AMLODIPINE [Suspect]
     Active Substance: AMLODIPINE BESYLATE
  3. LISINOPRIL (LISINOPRIL) [Suspect]
     Active Substance: LISINOPRIL
  4. ZOLPIDEM (ZOLPIDEM) [Suspect]
     Active Substance: ZOLPIDEM TARTRATE

REACTIONS (1)
  - Completed suicide [None]

NARRATIVE: CASE EVENT DATE: 2013
